FAERS Safety Report 8986602 (Version 1)
Quarter: 2012Q4

REPORT INFORMATION
  Report Type: 
  Country: CH (occurrence: CH)
  Receive Date: 20121226
  Receipt Date: 20121226
  Transmission Date: 20130627
  Serious: Yes (Life-Threatening, Hospitalization)
  Sender: FDA-Public Use
  Company Number: CH-ROCHE-1172081

PATIENT
  Age: 38 Year
  Sex: Female

DRUGS (17)
  1. MABTHERA [Suspect]
     Indication: PRODUCT USED FOR UNKNOWN INDICATION
     Route: 042
     Dates: start: 20070326
  2. MABTHERA [Suspect]
     Route: 042
     Dates: start: 20070326
  3. CELLCEPT [Suspect]
     Indication: PRODUCT USED FOR UNKNOWN INDICATION
     Route: 065
     Dates: start: 2007
  4. METHOTREXAT [Suspect]
     Indication: PRODUCT USED FOR UNKNOWN INDICATION
     Route: 065
  5. PREDNISONE [Suspect]
     Indication: PRODUCT USED FOR UNKNOWN INDICATION
     Route: 065
  6. NEURONTIN [Concomitant]
     Route: 065
  7. NEURONTIN [Concomitant]
     Route: 065
  8. NEURONTIN [Concomitant]
     Route: 065
  9. NEURONTIN [Concomitant]
     Route: 065
  10. FLUOXETIN [Concomitant]
     Route: 065
  11. FLUOXETIN [Concomitant]
     Route: 065
  12. FLUOXETIN [Concomitant]
     Route: 065
  13. FLUOXETIN [Concomitant]
     Route: 065
  14. FOSAMAX [Concomitant]
     Route: 065
  15. FOSAMAX [Concomitant]
     Route: 065
  16. FOSAMAX [Concomitant]
     Route: 065
  17. FOSAMAX [Concomitant]
     Route: 065

REACTIONS (2)
  - Bursitis [Recovered/Resolved]
  - Bacterial infection [Recovered/Resolved]
